FAERS Safety Report 9475960 (Version 1)
Quarter: 2013Q3

REPORT INFORMATION
  Report Type: Spontaneous
  Country: US (occurrence: US)
  Receive Date: 20130826
  Receipt Date: 20130826
  Transmission Date: 20140515
  Serious: Yes (Congenital Anomaly, Other)
  Sender: FDA-Public Use
  Company Number: US-PFIZER INC-2013244481

PATIENT
  Age: 1 Day
  Sex: Female
  Weight: 2.72 kg

DRUGS (3)
  1. ZOLOFT [Suspect]
     Indication: DEPRESSION
     Dosage: 100 MG, 2X/DAY
     Route: 064
     Dates: start: 2010, end: 2011
  2. LORTAB [Concomitant]
     Indication: FIBROMYALGIA
     Dosage: UNK
     Route: 064
  3. LORTAB [Concomitant]
     Indication: PAIN

REACTIONS (3)
  - Maternal exposure during pregnancy [Not Recovered/Not Resolved]
  - Heart disease congenital [Recovered/Resolved]
  - Trisomy 21 [Not Recovered/Not Resolved]
